FAERS Safety Report 17236621 (Version 1)
Quarter: 2020Q1

REPORT INFORMATION
  Report Type: Spontaneous
  Country: US (occurrence: US)
  Receive Date: 20200106
  Receipt Date: 20200106
  Transmission Date: 20200409
  Serious: Yes (Other)
  Sender: FDA-Public Use
  Company Number: US-ROCHE-2507351

PATIENT
  Age: 63 Year
  Sex: Male

DRUGS (5)
  1. FOSCARNET [Concomitant]
     Active Substance: FOSCARNET
     Route: 042
  2. VALGANCICLOVIR. [Suspect]
     Active Substance: VALGANCICLOVIR
     Indication: ANTIVIRAL PROPHYLAXIS
     Route: 048
  3. GANCICLOVIR. [Suspect]
     Active Substance: GANCICLOVIR
     Indication: ANTIVIRAL PROPHYLAXIS
     Route: 042
  4. VALGANCICLOVIR. [Suspect]
     Active Substance: VALGANCICLOVIR
     Route: 048
  5. SULFAMETHOXAZOLE/TRIMETHOPRIM [Concomitant]
     Active Substance: SULFAMETHOXAZOLE\TRIMETHOPRIM
     Indication: ANTIVIRAL PROPHYLAXIS
     Dosage: TRIMETHOPRIM/SULFAMETHOXAZOLE (160 MG/800 MG NIGHTLY) FOR 6 MONTHS AFTER TRANSPLANTATION AS PER OUR
     Route: 048

REACTIONS (3)
  - Cytomegalovirus viraemia [Recovering/Resolving]
  - Drug resistance [Recovering/Resolving]
  - Nephrotic syndrome [Recovering/Resolving]
